FAERS Safety Report 22065491 (Version 2)
Quarter: 2023Q2

REPORT INFORMATION
  Report Type: Spontaneous
  Country: US (occurrence: US)
  Receive Date: 20230306
  Receipt Date: 20230406
  Transmission Date: 20230721
  Serious: No
  Sender: FDA-Public Use
  Company Number: US-Blueprint Medicines Corporation-924

PATIENT
  Age: 90 Year
  Sex: Female
  Weight: 55.388 kg

DRUGS (3)
  1. AYVAKIT [Suspect]
     Active Substance: AVAPRITINIB
     Indication: Acute myeloid leukaemia
     Route: 065
     Dates: start: 20230131
  2. AYVAKIT [Suspect]
     Active Substance: AVAPRITINIB
     Route: 065
     Dates: start: 20230201
  3. NORCO [Concomitant]
     Active Substance: ACETAMINOPHEN\HYDROCODONE BITARTRATE
     Indication: Pain
     Route: 065
     Dates: start: 20230321

REACTIONS (12)
  - Haemoglobin decreased [Unknown]
  - Haematocrit decreased [Unknown]
  - Lymphocyte count decreased [Unknown]
  - Blood creatinine decreased [Unknown]
  - Blood calcium decreased [Unknown]
  - Blood urea increased [Unknown]
  - Red blood cell count abnormal [Unknown]
  - Mean cell volume increased [Unknown]
  - Mean cell haemoglobin concentration [Unknown]
  - Neutrophil count increased [Unknown]
  - Face oedema [Unknown]
  - Off label use [Unknown]

NARRATIVE: CASE EVENT DATE: 20230131
